FAERS Safety Report 24397626 (Version 2)
Quarter: 2024Q4

REPORT INFORMATION
  Report Type: Spontaneous
  Country: US (occurrence: US)
  Receive Date: 20241004
  Receipt Date: 20241107
  Transmission Date: 20250115
  Serious: No
  Sender: MYLAN
  Company Number: US-MYLANLABS-2024M1087502

PATIENT
  Age: 75 Year
  Sex: Female
  Weight: 57.15 kg

DRUGS (1)
  1. TYRVAYA [Suspect]
     Active Substance: VARENICLINE TARTRATE
     Indication: Dry eye
     Dosage: 0.03 MILLIGRAM, BID (1 DROP IN EACH NOSTRIL, TWO TIMES A DAY, TWICE A DAY)
     Route: 045
     Dates: start: 2022

REACTIONS (2)
  - Ocular hyperaemia [Unknown]
  - Accidental exposure to product [Unknown]

NARRATIVE: CASE EVENT DATE: 20240925
